FAERS Safety Report 8489519-4 (Version None)
Quarter: 2012Q3

REPORT INFORMATION
  Report Type: 
  Country: None (occurrence: None)
  Receive Date: 20120705
  Receipt Date: 20120626
  Transmission Date: 20120928
  Serious: Yes (Other)
  Sender: FDA-Public Use
  Company Number: US-ASTRAZENECA-2012SE40938

PATIENT
  Age: 28 Year
  Sex: Female

DRUGS (1)
  1. NEXIUM [Suspect]
     Route: 048

REACTIONS (16)
  - MATERNAL EXPOSURE DURING PREGNANCY [None]
  - FALL [None]
  - PANIC ATTACK [None]
  - CHOLELITHIASIS [None]
  - FATIGUE [None]
  - DYSPEPSIA [None]
  - ARTHRALGIA [None]
  - DRUG DOSE OMISSION [None]
  - CHOKING [None]
  - JOINT SWELLING [None]
  - ANXIETY [None]
  - CONFUSIONAL STATE [None]
  - GASTROOESOPHAGEAL REFLUX DISEASE [None]
  - BALANCE DISORDER [None]
  - ABORTION SPONTANEOUS [None]
  - POST-TRAUMATIC STRESS DISORDER [None]
